FAERS Safety Report 4781676-6 (Version None)
Quarter: 2005Q3

REPORT INFORMATION
  Report Type: 
  Country: None (occurrence: None)
  Receive Date: 20050927
  Receipt Date: 20050823
  Transmission Date: 20060218
  Serious: Yes (Other)
  Sender: FDA-Public Use
  Company Number: 2005AP000625

PATIENT
  Age: 55 Year
  Sex: Female

DRUGS (5)
  1. APO-CIPROFLOX         (CIPROFLOXACIN HYDROCHLORIDE) [Suspect]
     Indication: OTITIS EXTERNA
     Dosage: 500 MG; QD; PO
     Route: 048
     Dates: start: 20050806, end: 20050811
  2. INSULIN [Suspect]
     Dosage: 32 IU; QD; SC
     Route: 058
  3. METFORMIN [Concomitant]
  4. HYDROCHLOROTHIAZIDE [Concomitant]
  5. ALTACE [Concomitant]

REACTIONS (7)
  - ABDOMINAL PAIN UPPER [None]
  - BLOOD GLUCOSE DECREASED [None]
  - CHEST DISCOMFORT [None]
  - DIZZINESS [None]
  - DRUG INTERACTION [None]
  - DYSPNOEA [None]
  - MALAISE [None]
